FAERS Safety Report 20061642 (Version 3)
Quarter: 2022Q4

REPORT INFORMATION
  Report Type: Report from Study
  Country: CO (occurrence: CO)
  Receive Date: 20211112
  Receipt Date: 20221025
  Transmission Date: 20230112
  Serious: Yes (Other)
  Sender: FDA-Public Use
  Company Number: CO-ABBVIE-21K-036-4158819-00

PATIENT
  Sex: Female
  Weight: 76 kg

DRUGS (3)
  1. HUMIRA [Suspect]
     Active Substance: ADALIMUMAB
     Indication: Rheumatoid arthritis
     Dosage: FORM STRENGTH 40 MILLIGRAMS
     Route: 058
     Dates: start: 20221020
  2. HUMIRA [Suspect]
     Active Substance: ADALIMUMAB
     Dosage: FORM STRENGTH 40 MILLIGRAMS
     Route: 058
  3. OZURDEX [Suspect]
     Active Substance: DEXAMETHASONE
     Indication: Adverse event
     Route: 047
     Dates: start: 202110, end: 202110

REACTIONS (24)
  - Uveitis [Recovered/Resolved]
  - Eye disorder [Not Recovered/Not Resolved]
  - Macular oedema [Not Recovered/Not Resolved]
  - Arthropathy [Not Recovered/Not Resolved]
  - Blindness [Not Recovered/Not Resolved]
  - Sinusitis [Recovered/Resolved]
  - Influenza [Recovered/Resolved]
  - Rhinitis allergic [Recovered/Resolved]
  - Weight decreased [Not Recovered/Not Resolved]
  - Feeling abnormal [Not Recovered/Not Resolved]
  - Inflammation [Recovered/Resolved]
  - Ocular discomfort [Not Recovered/Not Resolved]
  - Photophobia [Recovering/Resolving]
  - Malaise [Recovered/Resolved]
  - Tendon disorder [Not Recovered/Not Resolved]
  - Influenza like illness [Recovered/Resolved]
  - Body height decreased [Unknown]
  - Fear [Recovered/Resolved]
  - Glaucoma [Not Recovered/Not Resolved]
  - Dry eye [Not Recovered/Not Resolved]
  - Illness [Recovered/Resolved]
  - Diarrhoea [Recovered/Resolved]
  - Blood pressure increased [Recovered/Resolved]
  - Uveitis [Not Recovered/Not Resolved]

NARRATIVE: CASE EVENT DATE: 20150101
